FAERS Safety Report 5587972-7 (Version None)
Quarter: 2008Q1

REPORT INFORMATION
  Report Type: 
  Country: None (occurrence: None)
  Receive Date: 20080111
  Receipt Date: 20080109
  Transmission Date: 20080703
  Serious: Yes (Hospitalization, Other)
  Sender: FDA-Public Use
  Company Number: FR-BRISTOL-MYERS SQUIBB COMPANY-14036198

PATIENT
  Age: 84 Year
  Sex: Female

DRUGS (9)
  1. BUSPAR [Suspect]
     Route: 048
     Dates: start: 20071119, end: 20071130
  2. PROTELOS [Suspect]
     Route: 048
     Dates: start: 20071119, end: 20071130
  3. ALDALIX [Concomitant]
     Route: 048
  4. RABEPRAZOLE SODIUM [Concomitant]
     Dosage: 1 DOSAGE FORM = 20 (NO UNIT) ONE TABLET
     Route: 048
  5. DEROXAT [Concomitant]
     Dosage: 1 DOSAGE FORM = 1 TABLET
     Route: 048
  6. PLAVIX [Concomitant]
     Dosage: 1 TABLET
     Route: 048
  7. NISIS [Concomitant]
     Dosage: 1 DOSAGE FORM = 1 TABLET
     Route: 048
  8. MOLSIDOMINE [Concomitant]
     Route: 048
  9. DISCOTRINE [Concomitant]
     Dosage: 1 PATCH DAILY

REACTIONS (2)
  - BRONCHITIS [None]
  - VASCULAR PURPURA [None]
